FAERS Safety Report 21818955 (Version 1)
Quarter: 2023Q1

REPORT INFORMATION
  Report Type: Spontaneous
  Country: US (occurrence: US)
  Receive Date: 20230104
  Receipt Date: 20230104
  Transmission Date: 20230418
  Serious: No
  Sender: FDA-Public Use
  Company Number: US-002147023-NVSC2023US001515

PATIENT

DRUGS (2)
  1. LATANOPROST [Suspect]
     Active Substance: LATANOPROST
     Indication: Glaucoma
     Dosage: UNK
     Route: 065
     Dates: start: 20190531
  2. LATANOPROST [Suspect]
     Active Substance: LATANOPROST
     Dosage: 50 UG, IN 1ML
     Route: 065
     Dates: start: 20190614

REACTIONS (4)
  - Blepharospasm [Unknown]
  - Gait disturbance [Unknown]
  - Insomnia [Unknown]
  - Arthralgia [Unknown]

NARRATIVE: CASE EVENT DATE: 20190610
